FAERS Safety Report 22239340 (Version 2)
Quarter: 2023Q2

REPORT INFORMATION
  Report Type: Report from Study
  Country: CN (occurrence: CN)
  Receive Date: 20230421
  Receipt Date: 20230501
  Transmission Date: 20230722
  Serious: Yes (Hospitalization, Other)
  Sender: FDA-Public Use
  Company Number: CN-TAKEDA-2023TUS039482

PATIENT
  Age: 72 Year
  Sex: Male
  Weight: 46 kg

DRUGS (10)
  1. VEDOLIZUMAB [Suspect]
     Active Substance: VEDOLIZUMAB
     Indication: Colitis ulcerative
     Dosage: 300 MILLIGRAM
     Route: 042
     Dates: start: 20221121
  2. MESALAMINE [Concomitant]
     Active Substance: MESALAMINE
     Indication: Inflammatory bowel disease
     Dosage: UNK
     Dates: start: 20201121
  3. MESALAMINE [Concomitant]
     Active Substance: MESALAMINE
     Indication: Inflammatory bowel disease
     Dosage: 1000 MILLIGRAM, Q6HR
     Route: 048
     Dates: start: 20221115
  4. METHYLPREDNISOLONE [Concomitant]
     Active Substance: METHYLPREDNISOLONE
     Indication: Inflammatory bowel disease
     Dosage: 40 MILLIGRAM, QD
     Route: 048
     Dates: start: 20221117
  5. BACILLUS SUBTILIS [Concomitant]
     Active Substance: BACILLUS SUBTILIS
     Indication: Dysbiosis
     Dosage: 250 MILLIGRAM, TID
     Route: 048
     Dates: start: 20221111
  6. VITAMIN D [Concomitant]
     Active Substance: VITAMIN D NOS
     Indication: Mineral supplementation
     Dosage: 1.5 GRAM, QD
     Route: 048
     Dates: start: 20221117
  7. ROSUVASTATIN [Concomitant]
     Active Substance: ROSUVASTATIN
     Indication: Hypolipidaemia
     Dosage: 10 MILLIGRAM, QD
     Route: 048
     Dates: start: 20221117
  8. INDOBUFEN [Concomitant]
     Active Substance: INDOBUFEN
     Indication: Antiplatelet therapy
     Dosage: 0.1 GRAM, BID
     Route: 048
     Dates: start: 20221117
  9. RABEPRAZOLE [Concomitant]
     Active Substance: RABEPRAZOLE
     Indication: Gastrointestinal disorder prophylaxis
     Dosage: 10 MILLIGRAM, QD
     Route: 048
     Dates: start: 20221121
  10. INFLIXIMAB [Concomitant]
     Active Substance: INFLIXIMAB
     Indication: Inflammatory bowel disease
     Dosage: 100 MILLIGRAM, 1/WEEK
     Route: 042
     Dates: start: 20230420

REACTIONS (1)
  - Colitis ulcerative [Recovered/Resolved]

NARRATIVE: CASE EVENT DATE: 20230414
